FAERS Safety Report 5922851-4 (Version None)
Quarter: 2008Q4

REPORT INFORMATION
  Report Type: 
  Country: None (occurrence: None)
  Receive Date: 20081017
  Receipt Date: 20081010
  Transmission Date: 20090506
  Serious: Yes (Death, Hospitalization)
  Sender: FDA-Public Use
  Company Number: PHHY2008JP17343

PATIENT
  Sex: Female
  Weight: 35 kg

DRUGS (6)
  1. ICL670A ICL+DISTAB [Suspect]
     Indication: IRON OVERLOAD
     Dosage: 500 MG
     Route: 048
     Dates: start: 20080701, end: 20080801
  2. ONEALFA [Concomitant]
     Dosage: 1 DF
     Route: 048
     Dates: start: 20060101, end: 20080801
  3. EVISTA [Concomitant]
     Dosage: 60 MG
     Route: 048
     Dates: start: 20060101, end: 20080801
  4. VESICARE [Concomitant]
     Dosage: 10 MG
     Route: 048
     Dates: start: 20060101, end: 20080801
  5. CYANOCOBALAMIN [Concomitant]
     Dosage: 1000 MG
     Route: 048
     Dates: start: 20060101, end: 20080801
  6. MAGMITT KENEI [Concomitant]
     Dosage: 660 MG
     Route: 048
     Dates: start: 20060101, end: 20080801

REACTIONS (4)
  - BLOOD CREATININE INCREASED [None]
  - BLOOD UREA INCREASED [None]
  - CONCOMITANT DISEASE AGGRAVATED [None]
  - MARASMUS [None]
